FAERS Safety Report 6963755-8 (Version None)
Quarter: 2010Q3

REPORT INFORMATION
  Report Type: 
  Country: None (occurrence: None)
  Receive Date: 20100902
  Receipt Date: 20100824
  Transmission Date: 20110219
  Serious: Yes (Hospitalization, Disabling, Other)
  Sender: FDA-Public Use
  Company Number: US-PFIZER INC-2010106920

PATIENT
  Sex: Female
  Weight: 116.1 kg

DRUGS (6)
  1. ZOLOFT [Suspect]
     Indication: DEPRESSION
     Dosage: 100 MG, UNK
  2. ZOLOFT [Suspect]
     Indication: BIPOLAR DISORDER
  3. DETROL LA [Suspect]
     Indication: NOCTURIA
     Dosage: 40 MG, 1X/DAY
     Route: 048
  4. NEURONTIN [Suspect]
     Indication: RESTLESS LEGS SYNDROME
     Dosage: 100 MG, 3X/DAY
  5. NEXIUM [Concomitant]
     Indication: GASTROOESOPHAGEAL REFLUX DISEASE
     Dosage: 40 MG, 1X/DAY
     Route: 048
  6. SYNTHROID [Concomitant]
     Indication: HYPOTHYROIDISM
     Dosage: UNK
     Route: 048

REACTIONS (9)
  - ANKLE FRACTURE [None]
  - ASTHENIA [None]
  - BEDRIDDEN [None]
  - BLOOD BILIRUBIN ABNORMAL [None]
  - BLOOD CREATININE DECREASED [None]
  - BLOOD MAGNESIUM DECREASED [None]
  - FALL [None]
  - MEMORY IMPAIRMENT [None]
  - RENAL IMPAIRMENT [None]
